FAERS Safety Report 8041138-X (Version None)
Quarter: 2012Q1

REPORT INFORMATION
  Report Type: 
  Country: None (occurrence: None)
  Receive Date: 20120112
  Receipt Date: 20111228
  Transmission Date: 20120608
  Serious: Yes (Other)
  Sender: FDA-Public Use
  Company Number: US-JNJFOC-20120103823

PATIENT
  Age: 4 Year
  Sex: Male

DRUGS (2)
  1. CHILDREN'S ZYRTEC HIVES RELIEF [Suspect]
     Indication: SEASONAL ALLERGY
     Route: 065
  2. CHILDREN'S ZYRTEC HIVES RELIEF [Suspect]
     Route: 065

REACTIONS (1)
  - TOURETTE'S DISORDER [None]
